FAERS Safety Report 16166393 (Version 1)
Quarter: 2019Q2

REPORT INFORMATION
  Report Type: Spontaneous
  Country: US (occurrence: US)
  Receive Date: 20190406
  Receipt Date: 20190406
  Transmission Date: 20190711
  Serious: Yes (Other)
  Sender: FDA-Public Use
  Company Number: PHEH2019US014287

PATIENT
  Sex: Male

DRUGS (7)
  1. RIFAMPICIN [Suspect]
     Active Substance: RIFAMPIN
     Indication: PULMONARY TUBERCULOSIS
     Route: 065
  2. MOXIFLOXACIN. [Suspect]
     Active Substance: MOXIFLOXACIN
     Indication: PULMONARY TUBERCULOSIS
     Route: 065
  3. ETHAMBUTOL [Suspect]
     Active Substance: ETHAMBUTOL HYDROCHLORIDE
     Indication: PULMONARY TUBERCULOSIS
     Route: 065
  4. ISONIAZID. [Suspect]
     Active Substance: ISONIAZID
     Indication: PULMONARY TUBERCULOSIS
     Route: 065
  5. LINEZOLID. [Suspect]
     Active Substance: LINEZOLID
     Indication: PULMONARY TUBERCULOSIS
     Route: 065
  6. PYRAZINAMIDE. [Suspect]
     Active Substance: PYRAZINAMIDE
     Indication: PULMONARY TUBERCULOSIS
     Route: 065
  7. PASER [Suspect]
     Active Substance: AMINOSALICYLIC ACID
     Indication: PULMONARY TUBERCULOSIS
     Route: 065

REACTIONS (4)
  - Pulmonary tuberculosis [Unknown]
  - Vomiting [Unknown]
  - Nausea [Unknown]
  - Drug intolerance [Unknown]
